FAERS Safety Report 25041615 (Version 1)
Quarter: 2025Q1

REPORT INFORMATION
  Report Type: Report from Study
  Country: US (occurrence: US)
  Receive Date: 20250305
  Receipt Date: 20250305
  Transmission Date: 20250409
  Serious: Yes (Hospitalization, Other)
  Sender: SERVIER
  Company Number: US-SERVIER-S25002780

PATIENT

DRUGS (2)
  1. TIBSOVO [Suspect]
     Active Substance: IVOSIDENIB
     Indication: Bone cancer
     Dosage: 500 MG, QD
     Route: 048
     Dates: start: 20240322
  2. TIBSOVO [Suspect]
     Active Substance: IVOSIDENIB
     Indication: Connective tissue neoplasm

REACTIONS (4)
  - Blood glucose decreased [Recovered/Resolved]
  - Fall [Recovered/Resolved]
  - Joint injury [Unknown]
  - Limb injury [Unknown]

NARRATIVE: CASE EVENT DATE: 20241231
